FAERS Safety Report 24180444 (Version 2)
Quarter: 2024Q4

REPORT INFORMATION
  Report Type: Report from Study
  Country: US (occurrence: US)
  Receive Date: 20240806
  Receipt Date: 20241010
  Transmission Date: 20250115
  Serious: Yes (Hospitalization, Other)
  Sender: ACCORD
  Company Number: US-SUMITOMO PHARMA SWITZERLAND GMBH-2024SPA000170

PATIENT
  Age: 83 Year
  Sex: Male

DRUGS (3)
  1. AMLODIPINE [Suspect]
     Active Substance: AMLODIPINE BESYLATE
     Indication: Product used for unknown indication
     Dosage: UNK
  2. RELUGOLIX [Suspect]
     Active Substance: RELUGOLIX
     Indication: Prostate cancer
     Dosage: 120 MG, QD, STARTED WITH BIOLOGICS (NO LOADING DOSE NEEDED)
     Route: 048
     Dates: start: 20240401
  3. FLOMAX [Suspect]
     Active Substance: TAMSULOSIN HYDROCHLORIDE
     Indication: Product used for unknown indication
     Dosage: UNK

REACTIONS (4)
  - Loss of consciousness [Unknown]
  - Fall [Unknown]
  - Skin abrasion [Unknown]
  - Incorrect dose administered [Unknown]
